FAERS Safety Report 6620108-X (Version None)
Quarter: 2010Q1

REPORT INFORMATION
  Report Type: 
  Country: None (occurrence: None)
  Receive Date: 20100223
  Receipt Date: 20091216
  Transmission Date: 20100710
  Serious: No
  Sender: FDA-Public Use
  Company Number: 003446

PATIENT
  Sex: Female

DRUGS (1)
  1. CIMZIA [Suspect]
     Dosage: (400 MG SUBCUTANEOUS)
     Route: 058
     Dates: start: 20090306

REACTIONS (2)
  - ABDOMINAL DISTENSION [None]
  - NAUSEA [None]
